FAERS Safety Report 10108906 (Version 1)
Quarter: 2014Q2

REPORT INFORMATION
  Report Type: Report from Study
  Country: CA (occurrence: CA)
  Receive Date: 20140425
  Receipt Date: 20140425
  Transmission Date: 20141212
  Serious: Yes (Hospitalization)
  Sender: FDA-Public Use
  Company Number: CA-ALEXION PHARMACEUTICALS INC.-A201400738

PATIENT
  Sex: 0

DRUGS (5)
  1. ECULIZUMAB [Suspect]
     Indication: HAEMOLYTIC URAEMIC SYNDROME
     Dosage: 900 MG, QW
     Route: 042
     Dates: start: 20090825, end: 20090915
  2. ECULIZUMAB [Suspect]
     Dosage: 1200 MG, Q2W
     Route: 042
     Dates: start: 20090922, end: 20130508
  3. ECULIZUMAB [Suspect]
     Dosage: 900 MG, QW
     Dates: start: 20140130
  4. FOSINOPRIL [Concomitant]
     Indication: HYPERTENSION
     Dosage: UNK
     Route: 048
     Dates: start: 1993
  5. HYDROMORPHONE [Concomitant]
     Indication: ABDOMINAL PAIN
     Dosage: UNK DOSE, EVERY 4 HOURS
     Dates: start: 201402

REACTIONS (4)
  - Abdominal pain [Unknown]
  - Pancreatic enzymes increased [Unknown]
  - Haemoglobin decreased [Unknown]
  - Platelet count decreased [Unknown]
